FAERS Safety Report 5553442-5 (Version None)
Quarter: 2007Q4

REPORT INFORMATION
  Report Type: 
  Country: None (occurrence: None)
  Receive Date: 20071213
  Receipt Date: 20071211
  Transmission Date: 20080405
  Serious: Yes (Death)
  Sender: FDA-Public Use
  Company Number: DE-BRISTOL-MYERS SQUIBB COMPANY-14011431

PATIENT

DRUGS (2)
  1. SUSTIVA [Suspect]
     Indication: HIV INFECTION
  2. TRUVADA [Suspect]
     Indication: HIV INFECTION

REACTIONS (1)
  - CARDIAC FAILURE [None]
